FAERS Safety Report 13815181 (Version 1)
Quarter: 2017Q3

REPORT INFORMATION
  Report Type: Spontaneous
  Country: US (occurrence: US)
  Receive Date: 20170731
  Receipt Date: 20170731
  Transmission Date: 20171127
  Serious: Yes (Hospitalization)
  Sender: FDA-Public Use
  Company Number: US-PFIZER INC-2017328987

PATIENT
  Age: 58 Year
  Sex: Female
  Weight: 71.21 kg

DRUGS (2)
  1. LYRICA [Suspect]
     Active Substance: PREGABALIN
     Indication: GAIT DISTURBANCE
     Dosage: 200 MG, 3X/DAY
     Route: 048
     Dates: end: 201707
  2. PREDNISONE. [Suspect]
     Active Substance: PREDNISONE

REACTIONS (4)
  - Blood glucose increased [Unknown]
  - Product use in unapproved indication [Unknown]
  - Gait disturbance [Recovering/Resolving]
  - Paralysis [Recovering/Resolving]

NARRATIVE: CASE EVENT DATE: 201707
